FAERS Safety Report 5113313-5 (Version None)
Quarter: 2006Q3

REPORT INFORMATION
  Report Type: 
  Country: None (occurrence: None)
  Receive Date: 20060920
  Receipt Date: 20060912
  Transmission Date: 20061208
  Serious: Yes (Hospitalization)
  Sender: FDA-Public Use
  Company Number: HQWYE601312SEP06

PATIENT
  Age: 14 Year
  Sex: Male

DRUGS (1)
  1. ADVIL [Suspect]
     Dosage: 200 MG, ORAL
     Route: 048

REACTIONS (5)
  - ACIDOSIS [None]
  - COMA [None]
  - DRUG EFFECT DECREASED [None]
  - HEART RATE INCREASED [None]
  - INTENTIONAL OVERDOSE [None]
